FAERS Safety Report 15660461 (Version 1)
Quarter: 2018Q4

REPORT INFORMATION
  Report Type: Spontaneous
  Country: US (occurrence: US)
  Receive Date: 20181115
  Receipt Date: 20181115
  Transmission Date: 20190205
  Serious: No
  Sender: FDA-Public Use
  Company Number: None

PATIENT
  Age: 42 Year
  Sex: Female

DRUGS (1)
  1. TALTZ [Suspect]
     Active Substance: IXEKIZUMAB
     Indication: PSORIASIS
     Dosage: 160MG AT WEEK 0, THEN 80MG AT WEEKS   SEE PREVIOUS SUBCUTANEOUSLY
     Route: 058
     Dates: start: 20181016

REACTIONS (4)
  - Nausea [None]
  - Arthralgia [None]
  - Myalgia [None]
  - Abdominal pain upper [None]

NARRATIVE: CASE EVENT DATE: 20181114
